FAERS Safety Report 8333282-4 (Version None)
Quarter: 2012Q2

REPORT INFORMATION
  Report Type: 
  Country: None (occurrence: None)
  Receive Date: 20120503
  Receipt Date: 20120425
  Transmission Date: 20120825
  Serious: Yes (Life-Threatening)
  Sender: FDA-Public Use
  Company Number: JP-VERTEX PHARMACEUTICALS INC.-AE-2012-006061

PATIENT
  Age: 64 Year
  Sex: Male

DRUGS (3)
  1. PEG-INTRON [Concomitant]
     Route: 058
     Dates: start: 20120410
  2. REBETOL [Concomitant]
     Route: 048
     Dates: start: 20120410, end: 20120412
  3. TELAVIC (TELAPREVIR) [Suspect]
     Route: 048
     Dates: start: 20120410, end: 20120416

REACTIONS (1)
  - GENERAL PHYSICAL HEALTH DETERIORATION [None]
